FAERS Safety Report 25089085 (Version 2)
Quarter: 2025Q2

REPORT INFORMATION
  Report Type: Spontaneous
  Country: US (occurrence: US)
  Receive Date: 20250318
  Receipt Date: 20250422
  Transmission Date: 20250717
  Serious: No
  Sender: PFIZER
  Company Number: US-PFIZER INC-202500055892

PATIENT
  Age: 30 Year
  Sex: Male
  Weight: 97.07 kg

DRUGS (2)
  1. GENOTROPIN [Suspect]
     Active Substance: SOMATROPIN
     Indication: Growth hormone deficiency
     Dosage: 0.4 MG, DAILY
  2. DESMOPRESSIN [Concomitant]
     Active Substance: DESMOPRESSIN
     Dosage: 0.01 MG, DAILY
     Dates: start: 2010

REACTIONS (3)
  - Device mechanical issue [Unknown]
  - Device leakage [Unknown]
  - Drug dose omission by device [Unknown]

NARRATIVE: CASE EVENT DATE: 20250201
